FAERS Safety Report 5723970-8 (Version None)
Quarter: 2008Q2

REPORT INFORMATION
  Report Type: 
  Country: None (occurrence: None)
  Receive Date: 20080430
  Receipt Date: 20080428
  Transmission Date: 20081010
  Serious: Yes (Other)
  Sender: FDA-Public Use
  Company Number: FR-WYE-G01477408

PATIENT
  Age: 50 Year
  Sex: Male

DRUGS (1)
  1. TORISEL [Suspect]
     Indication: RENAL CANCER METASTATIC
     Route: 042
     Dates: start: 20080401, end: 20080401

REACTIONS (1)
  - CYTOLYTIC HEPATITIS [None]
